FAERS Safety Report 5851843-9 (Version None)
Quarter: 2008Q3

REPORT INFORMATION
  Report Type: 
  Country: None (occurrence: None)
  Receive Date: 20080819
  Receipt Date: 20080806
  Transmission Date: 20090109
  Serious: Yes (Hospitalization)
  Sender: FDA-Public Use
  Company Number: 2008AL009514

PATIENT
  Age: 90 Year
  Sex: Female

DRUGS (6)
  1. FLUOXETINE [Suspect]
     Indication: DEPRESSION
     Dosage: QAM; PO
     Route: 048
     Dates: end: 20080716
  2. FLUDROCORTISONE ACETATE [Concomitant]
  3. FOLIC ACID [Concomitant]
  4. AMIODARONE [Concomitant]
  5. ACETAMINOPHEN [Concomitant]
  6. CYCLIZINE [Concomitant]

REACTIONS (3)
  - INAPPROPRIATE ANTIDIURETIC HORMONE SECRETION [None]
  - SYNCOPE [None]
  - URINARY TRACT INFECTION [None]
